FAERS Safety Report 14814214 (Version 1)
Quarter: 2018Q2

REPORT INFORMATION
  Report Type: Spontaneous
  Country: NL (occurrence: NL)
  Receive Date: 20180426
  Receipt Date: 20180426
  Transmission Date: 20180711
  Serious: Yes (Hospitalization, Other)
  Sender: FDA-Public Use
  Company Number: NL-ACCORD-066107

PATIENT
  Age: 42 Year
  Sex: Female

DRUGS (2)
  1. CLOZAPINE. [Suspect]
     Active Substance: CLOZAPINE
     Indication: SCHIZOAFFECTIVE DISORDER
     Dosage: 250 MG DAILY
  2. IMIPRAMINE [Suspect]
     Active Substance: IMIPRAMINE
     Indication: SCHIZOAFFECTIVE DISORDER

REACTIONS (5)
  - Disorientation [Recovered/Resolved]
  - Pleural effusion [Recovered/Resolved]
  - Lower respiratory tract infection [Recovered/Resolved]
  - Apraxia [Recovered/Resolved]
  - Confusional state [Recovered/Resolved]
